FAERS Safety Report 8976664 (Version 1)
Quarter: 2012Q4

REPORT INFORMATION
  Report Type: 
  Country: US (occurrence: US)
  Receive Date: 20121220
  Receipt Date: 20121220
  Transmission Date: 20130627
  Serious: Yes (Other)
  Sender: FDA-Public Use
  Company Number: US-PFIZER INC-2012318370

PATIENT
  Age: 44 Year
  Sex: Female

DRUGS (2)
  1. METAXALONE [Suspect]
     Dosage: 800 mg, UNK
  2. SOMA [Suspect]
     Dosage: UNK

REACTIONS (1)
  - Cerebrovascular accident [Unknown]
